FAERS Safety Report 10723272 (Version 1)
Quarter: 2015Q1

REPORT INFORMATION
  Report Type: Spontaneous
  Country: FR (occurrence: None)
  Receive Date: 20150114
  Receipt Date: 20150114
  Transmission Date: 20150721
  Serious: Yes (Death)
  Sender: FDA-Public Use
  Company Number: 201501IM008559

PATIENT
  Age: 83 Year
  Sex: Female

DRUGS (7)
  1. ESBRIET [Suspect]
     Active Substance: PIRFENIDONE
     Indication: PRODUCT USED FOR UNKNOWN INDICATION
     Route: 048
     Dates: start: 201310, end: 201410
  2. KARDEGIC [Concomitant]
     Active Substance: ASPIRIN LYSINE
  3. FUROSEMIDE. [Concomitant]
     Active Substance: FUROSEMIDE
  4. RILMENIDINE [Concomitant]
     Active Substance: RILMENIDINE
  5. PANTOPRAZOLE [Concomitant]
     Active Substance: PANTOPRAZOLE SODIUM
  6. ATARAX [Concomitant]
     Active Substance: HYDROXYZINE\HYDROXYZINE HYDROCHLORIDE
  7. NEBIVOLOL [Concomitant]
     Active Substance: NEBIVOLOL

REACTIONS (1)
  - Death [None]

NARRATIVE: CASE EVENT DATE: 201412
